FAERS Safety Report 10080583 (Version 1)
Quarter: 2014Q2

REPORT INFORMATION
  Report Type: Spontaneous
  Country: US (occurrence: US)
  Receive Date: 20140416
  Receipt Date: 20140416
  Transmission Date: 20141212
  Serious: No
  Sender: FDA-Public Use
  Company Number: US-009507513-1404USA007218

PATIENT
  Age: 76 Year
  Sex: Female

DRUGS (1)
  1. COZAAR [Suspect]
     Dosage: SHE TOOK FOR ABOUT 10 DAYS
     Route: 048
     Dates: start: 201312

REACTIONS (4)
  - Dehydration [Unknown]
  - Drug ineffective [Unknown]
  - Malaise [Unknown]
  - Dizziness [Unknown]
